FAERS Safety Report 7581501-4 (Version None)
Quarter: 2011Q2

REPORT INFORMATION
  Report Type: 
  Country: None (occurrence: None)
  Receive Date: 20110629
  Receipt Date: 20080718
  Transmission Date: 20111010
  Serious: Yes (Disabling, Other)
  Sender: FDA-Public Use
  Company Number: US-BAYER-200824868NA

PATIENT
  Age: 66 Year
  Sex: Male

DRUGS (27)
  1. MAGNEVIST [Suspect]
     Indication: IMAGING PROCEDURE
     Dates: start: 20070316, end: 20070316
  2. MAGNEVIST [Suspect]
     Dates: start: 20030711, end: 20030711
  3. LIPITOR [Concomitant]
     Dosage: AT BEDTIME
  4. VITAMIN B-12 [Concomitant]
  5. MAGNEVIST [Suspect]
     Dosage: 20 CC
     Dates: start: 20061107, end: 20061107
  6. ALLOPURINOL [Concomitant]
  7. CLONIDINE [Concomitant]
     Dosage: AFTERNOON AND BEDTIME
  8. RENAGEL [Concomitant]
  9. COUMADIN [Concomitant]
  10. AMIODARONE HCL [Concomitant]
  11. MAGNEVIST [Suspect]
     Indication: NUCLEAR MAGNETIC RESONANCE IMAGING
     Dates: start: 20050630, end: 20050630
  12. MAGNEVIST [Suspect]
  13. FUROSEMIDE [Concomitant]
  14. LOTREL [Concomitant]
  15. SENSIPAR [Concomitant]
  16. COREG [Concomitant]
     Dosage: SUPPER
  17. INSULIN [Concomitant]
     Dosage: AT ABOUT 6-7 PM
  18. ASPIRIN [Concomitant]
  19. ZOLOFT [Concomitant]
  20. RENAGEL [Concomitant]
     Dosage: 3 EACH WITH MEAL, 2 EACH WITH SNACKS
  21. INSULIN [Concomitant]
     Dosage: AT 8 AM
  22. LIPITOR [Concomitant]
  23. MAGNEVIST [Suspect]
     Indication: ANGIOGRAM
     Dosage: 15 ML, ONCE
     Dates: start: 20040830, end: 20040830
  24. MAGNEVIST [Suspect]
     Indication: SURGERY
     Dosage: 20 ML
     Dates: start: 20061026, end: 20061026
  25. OPTIMARK [Suspect]
     Indication: NUCLEAR MAGNETIC RESONANCE IMAGING
     Dosage: 20 CC
     Dates: start: 20070124, end: 20070124
  26. HYDRALAZINE HCL [Concomitant]
     Dosage: 3 A DAY - AFTERNOON AND BEDTIME
  27. IMDUR [Concomitant]

REACTIONS (8)
  - EMOTIONAL DISTRESS [None]
  - MOBILITY DECREASED [None]
  - PERIPHERAL VASCULAR DISORDER [None]
  - NEPHROGENIC SYSTEMIC FIBROSIS [None]
  - ANXIETY [None]
  - INJURY [None]
  - PAIN [None]
  - AMPUTATION [None]
